FAERS Safety Report 7927133-7 (Version None)
Quarter: 2011Q4

REPORT INFORMATION
  Report Type: 
  Country: None (occurrence: None)
  Receive Date: 20111116
  Receipt Date: 20111031
  Transmission Date: 20120403
  Serious: Yes (Disabling, Other)
  Sender: FDA-Public Use
  Company Number: 021063

PATIENT
  Age: 72 Year
  Sex: Male

DRUGS (5)
  1. PEGAPTANIB SODIUM (PEGAPTANIB SODIUM) UNKNOWN [Suspect]
     Indication: AGE-RELATED MACULAR DEGENERATION
     Dosage: 0.3 MGMG INTO RIGHT EYE, INTRAOCULAR, 0.3 MG INTO RIGHT EYE, INTRAOCULAR
     Route: 031
     Dates: start: 20090604, end: 20090604
  2. PEGAPTANIB SODIUM (PEGAPTANIB SODIUM) UNKNOWN [Suspect]
     Indication: CHOROIDAL NEOVASCULARISATION
     Dosage: 0.3 MGMG INTO RIGHT EYE, INTRAOCULAR, 0.3 MG INTO RIGHT EYE, INTRAOCULAR
     Route: 031
     Dates: start: 20090604, end: 20090604
  3. PEGAPTANIB SODIUM (PEGAPTANIB SODIUM) UNKNOWN [Suspect]
     Indication: AGE-RELATED MACULAR DEGENERATION
     Dosage: 0.3 MGMG INTO RIGHT EYE, INTRAOCULAR, 0.3 MG INTO RIGHT EYE, INTRAOCULAR
     Route: 031
     Dates: start: 20090901, end: 20090901
  4. PEGAPTANIB SODIUM (PEGAPTANIB SODIUM) UNKNOWN [Suspect]
     Indication: CHOROIDAL NEOVASCULARISATION
     Dosage: 0.3 MGMG INTO RIGHT EYE, INTRAOCULAR, 0.3 MG INTO RIGHT EYE, INTRAOCULAR
     Route: 031
     Dates: start: 20090901, end: 20090901
  5. XALATAN [Concomitant]

REACTIONS (2)
  - RETINAL HAEMORRHAGE [None]
  - VITREOUS HAEMORRHAGE [None]
